FAERS Safety Report 5861077-X (Version None)
Quarter: 2008Q3

REPORT INFORMATION
  Report Type: 
  Country: None (occurrence: None)
  Receive Date: 20080827
  Receipt Date: 20080313
  Transmission Date: 20090109
  Serious: No
  Sender: FDA-Public Use
  Company Number: US-ABBOTT-08P-163-0437776-00

PATIENT
  Sex: Male
  Weight: 95.34 kg

DRUGS (6)
  1. NIASPAN [Suspect]
     Indication: HIGH DENSITY LIPOPROTEIN DECREASED
     Route: 048
     Dates: end: 20080303
  2. NIASPAN [Suspect]
     Route: 048
  3. NIASPAN [Suspect]
     Route: 048
  4. NIASPAN [Suspect]
     Dosage: 500MG (COATED) AT SUPPER AND
  5. ESOMEPRAZOLE [Suspect]
     Indication: GASTRIC ULCER
     Route: 048
  6. ESOMEPRAZOLE [Suspect]
     Route: 048

REACTIONS (2)
  - PRURITUS [None]
  - RASH [None]
